FAERS Safety Report 7151869-1 (Version None)
Quarter: 2010Q4

REPORT INFORMATION
  Report Type: 
  Country: None (occurrence: None)
  Receive Date: 20101210
  Receipt Date: 20101208
  Transmission Date: 20110411
  Serious: Yes (Death)
  Sender: FDA-Public Use
  Company Number: PL-AMGEN-POLCT2010008046

PATIENT
  Sex: Female

DRUGS (1)
  1. DENOSUMAB [Suspect]
     Indication: METASTASES TO BONE
     Dosage: 120 MG, UNK
     Route: 058
     Dates: start: 20090730, end: 20100708

REACTIONS (1)
  - DISEASE PROGRESSION [None]
